FAERS Safety Report 24184596 (Version 1)
Quarter: 2024Q3

REPORT INFORMATION
  Report Type: Spontaneous
  Country: GR (occurrence: GR)
  Receive Date: 20240807
  Receipt Date: 20240807
  Transmission Date: 20241016
  Serious: Yes (Other)
  Sender: MYLAN
  Company Number: None

PATIENT
  Age: 77 Year
  Sex: Female
  Weight: 85 kg

DRUGS (4)
  1. LIPITOR [Suspect]
     Active Substance: ATORVASTATIN CALCIUM
     Indication: Product used for unknown indication
     Dosage: 20 MILLIGRAM, 20MG/TAB
     Route: 048
     Dates: start: 201603, end: 201604
  2. ATORVASTATIN CALCIUM [Suspect]
     Active Substance: ATORVASTATIN CALCIUM
     Indication: Product used for unknown indication
     Dosage: 10 MILLIGRAM, 10MG/TAB
     Route: 048
     Dates: start: 201708, end: 201709
  3. PRAVACHOL [Suspect]
     Active Substance: PRAVASTATIN SODIUM
     Indication: Product used for unknown indication
     Dosage: 40 MILLIGRAM, 40MG/TAB
     Route: 048
     Dates: start: 2017, end: 2017
  4. PITAVASTATIN [Suspect]
     Active Substance: PITAVASTATIN
     Indication: Product used for unknown indication
     Dosage: 1 MILLIGRAM, 1MG/TAB
     Route: 048
     Dates: start: 201712, end: 2021

REACTIONS (3)
  - Hypersensitivity [Unknown]
  - Transaminases increased [Unknown]
  - Face oedema [Unknown]

NARRATIVE: CASE EVENT DATE: 20160301
